FAERS Safety Report 9346609 (Version 1)
Quarter: 2013Q2

REPORT INFORMATION
  Report Type: Spontaneous
  Country: FR (occurrence: FR)
  Receive Date: 20130613
  Receipt Date: 20130613
  Transmission Date: 20140414
  Serious: Yes (Hospitalization)
  Sender: FDA-Public Use
  Company Number: FR-SANOFI-AVENTIS-2013SA058693

PATIENT
  Age: 66 Year
  Sex: Male

DRUGS (10)
  1. LOVENOX [Suspect]
     Indication: PRODUCT USED FOR UNKNOWN INDICATION
     Route: 058
     Dates: start: 20130214, end: 20130221
  2. MOPRAL [Suspect]
     Indication: PRODUCT USED FOR UNKNOWN INDICATION
     Route: 048
     Dates: end: 20130214
  3. PARACETAMOL [Suspect]
     Indication: PRODUCT USED FOR UNKNOWN INDICATION
     Dosage: STRENGTH:1 G
     Route: 042
     Dates: start: 20130214, end: 20130221
  4. AUGMENTIN [Suspect]
     Indication: PRODUCT USED FOR UNKNOWN INDICATION
     Dosage: STRENGTH:2G/200MG
     Route: 042
     Dates: start: 20130214, end: 20130221
  5. METFORMIN [Suspect]
     Indication: PRODUCT USED FOR UNKNOWN INDICATION
     Route: 048
     Dates: end: 20130214
  6. AMIODARONE [Suspect]
     Indication: PRODUCT USED FOR UNKNOWN INDICATION
     Route: 048
  7. MICARDIS [Suspect]
     Indication: PRODUCT USED FOR UNKNOWN INDICATION
     Route: 048
     Dates: end: 20130214
  8. DEROXAT [Suspect]
     Indication: PRODUCT USED FOR UNKNOWN INDICATION
     Dosage: STRENGTH:20MG
     Route: 048
     Dates: end: 20130214
  9. KALEORID [Suspect]
     Indication: PRODUCT USED FOR UNKNOWN INDICATION
     Dosage: PROLONGED LIBERATION TABLET
     Route: 048
     Dates: end: 20130214
  10. VENOFER [Suspect]
     Indication: PRODUCT USED FOR UNKNOWN INDICATION
     Dosage: STRENGTH:20MG/ML
     Route: 042
     Dates: end: 20130214

REACTIONS (2)
  - Lymphopenia [Recovered/Resolved]
  - Leukopenia [Recovered/Resolved]
